FAERS Safety Report 9378426 (Version 1)
Quarter: 2013Q3

REPORT INFORMATION
  Report Type: Spontaneous
  Country: US (occurrence: US)
  Receive Date: 20130701
  Receipt Date: 20130701
  Transmission Date: 20140515
  Serious: Yes (Hospitalization, Other)
  Sender: FDA-Public Use
  Company Number: US-UCBSA-089982

PATIENT
  Sex: Male

DRUGS (3)
  1. CIMZIA [Suspect]
     Indication: CROHN^S DISEASE
     Dosage: DOSE: UNKNOWN
  2. HUMIRA [Suspect]
     Indication: CROHN^S DISEASE
     Dosage: UNKNOWN
  3. REMICADE [Concomitant]
     Indication: CROHN^S DISEASE

REACTIONS (3)
  - Organising pneumonia [Unknown]
  - Pulmonary granuloma [Unknown]
  - Arthralgia [Unknown]
